FAERS Safety Report 11804742 (Version 1)
Quarter: 2015Q4

REPORT INFORMATION
  Report Type: Spontaneous
  Country: GB (occurrence: GB)
  Receive Date: 20151205
  Receipt Date: 20151205
  Transmission Date: 20160305
  Serious: Yes (Hospitalization, Other)
  Sender: FDA-Public Use
  Company Number: GB-ACCORD-035939

PATIENT
  Age: 69 Year
  Sex: Male
  Weight: 89 kg

DRUGS (6)
  1. ZOPICLONE [Concomitant]
     Active Substance: ZOPICLONE
     Dosage: AT NIGHT
     Dates: start: 20151015
  2. QUETIAPINE/QUETIAPINE FUMARATE [Concomitant]
     Dosage: AT NIGHT
     Dates: start: 20151015, end: 20151113
  3. LEVETIRACETAM. [Suspect]
     Active Substance: LEVETIRACETAM
     Indication: PRODUCT USED FOR UNKNOWN INDICATION
     Dates: start: 20150907
  4. SENNA [Concomitant]
     Active Substance: SENNA LEAF\SENNOSIDES\SENNOSIDES A AND B
     Dosage: TAKE 1 OR 2 AT NIGHT
     Dates: start: 20151015
  5. CITALOPRAM [Concomitant]
     Active Substance: CITALOPRAM HYDROBROMIDE
     Dates: start: 20150518
  6. E45 [Concomitant]
     Active Substance: LANOLIN\LIGHT MINERAL OIL\PARAFFIN
     Dates: start: 20151015, end: 20151022

REACTIONS (1)
  - Acute psychosis [Recovering/Resolving]

NARRATIVE: CASE EVENT DATE: 20150911
